FAERS Safety Report 7541092-0 (Version None)
Quarter: 2011Q2

REPORT INFORMATION
  Report Type: 
  Country: None (occurrence: None)
  Receive Date: 20110610
  Receipt Date: 20110607
  Transmission Date: 20111010
  Serious: Yes (Hospitalization)
  Sender: FDA-Public Use
  Company Number: FR-ROCHE-781441

PATIENT
  Sex: Male

DRUGS (22)
  1. AVASTIN [Suspect]
     Dosage: FREQUENCY: BY CYCLE. DRUG NAME AS REPORTED: AVASTIN 25 MG/ML. FORM: SOLUTION FOR INFUSION
     Route: 042
     Dates: start: 20101110
  2. NEULASTA [Suspect]
     Route: 042
     Dates: start: 20101021
  3. CISPLATIN [Suspect]
     Dosage: FREQUENCY: BY CYLCE. CISPLATINE: 75 MG/M2
     Route: 042
     Dates: start: 20101110
  4. ALIMTA [Suspect]
     Dosage: FREQUENCY: BY CYCLES ALIMTA 500 MG/M2
     Route: 042
     Dates: start: 20100928
  5. ALIMTA [Suspect]
     Dosage: FREQUENCY: BY CYCLES ALIMTA: 500 MG/M2
     Route: 042
     Dates: start: 20101110
  6. NEXIUM [Concomitant]
  7. ALIMTA [Suspect]
     Dosage: FREQUENCY: BY CYCLES ALIMTA: 500 MG/M2
     Route: 042
     Dates: start: 20101021
  8. PREDNISONE [Concomitant]
  9. AVASTIN [Suspect]
     Indication: LUNG CANCER METASTATIC
     Dosage: FREQUENCY: BY CYCLE. DRUG NAME AS REPORTED: AVASTIN 25 MG/ML. FORM: SOLUTION FOR INFUSION
     Route: 042
     Dates: start: 20100907
  10. NEULASTA [Suspect]
     Indication: LUNG CANCER METASTATIC
     Route: 042
     Dates: start: 20100907
  11. ALIMTA [Suspect]
     Indication: LUNG CANCER METASTATIC
     Dosage: FREQUENCY: BY CYCLE. DRUG NAME AS REPORTED: ALIMTA 500 MG/M2 POWDER FOR INFUSION SOLUTION.
     Route: 042
     Dates: start: 20100907
  12. PLAVIX [Concomitant]
  13. AVASTIN [Suspect]
     Dosage: FREQUENCY: BY CYCLE. DRUG NAME AS REPORTED: AVASTIN 25 MG/ML. FORM: SOLUTION FOR INFUSION
     Route: 042
     Dates: start: 20101021
  14. NEULASTA [Suspect]
     Route: 042
     Dates: start: 20100928
  15. CISPLATIN [Suspect]
     Indication: LUNG CANCER METASTATIC
     Dosage: FREQUENCY: BY CYLCE. CISPLATINE: 75 MG/M2
     Route: 042
     Dates: start: 20100907
  16. CISPLATIN [Suspect]
     Dosage: FREQUENCY: BY CYLCE. CISPLATINE: 75 MG/M2
     Route: 042
     Dates: start: 20101021
  17. DICETEL [Concomitant]
  18. CLASTOBAN [Concomitant]
  19. CRESTOR [Concomitant]
  20. CISPLATIN [Suspect]
     Dosage: FREQUENCY: BY CYLCE. CISPLATINE: 75 MG/M2
     Route: 042
     Dates: start: 20100928
  21. AVASTIN [Suspect]
     Dosage: FREQUENCY: BY CYCLE. DRUG NAME AS REPORTED: AVASTIN 25 MG/ML. FORM: SOLUTION FOR INFUSION
     Route: 042
     Dates: start: 20100928
  22. NEULASTA [Suspect]
     Route: 042
     Dates: start: 20101110

REACTIONS (1)
  - PNEUMOTHORAX [None]
